FAERS Safety Report 10418584 (Version 1)
Quarter: 2014Q3

REPORT INFORMATION
  Report Type: Spontaneous
  Country: US (occurrence: US)
  Receive Date: 20140829
  Receipt Date: 20140829
  Transmission Date: 20150326
  Serious: No
  Sender: FDA-Public Use
  Company Number: US-SHIRE-US201405221

PATIENT
  Age: 74 Year
  Sex: Female
  Weight: 79.37 kg

DRUGS (13)
  1. GABAPENTIN. [Concomitant]
     Active Substance: GABAPENTIN
     Indication: SCIATICA
     Dosage: 300 MG, 4X/DAY:QID
     Route: 048
  2. POTASSIUM CHLORIDE. [Concomitant]
     Active Substance: POTASSIUM CHLORIDE
     Indication: RESTLESS LEGS SYNDROME
     Dosage: 10 MEQ, 2X/DAY:BID
     Route: 048
  3. METRONIDAZOLE. [Concomitant]
     Active Substance: METRONIDAZOLE
     Indication: ROSACEA
     Dosage: UNK UNK (0.75%), 1X/DAY:QD
     Route: 061
     Dates: start: 2011
  4. LEVOTHYROXINE [Concomitant]
     Active Substance: LEVOTHYROXINE
     Indication: HYPOTHYROIDISM
     Dosage: 0.1 MG, 1X/DAY:QD
     Route: 048
  5. DICLOFENAC [Concomitant]
     Active Substance: DICLOFENAC
     Indication: ARTHRITIS
     Dosage: 100 MG, 1X/DAY:QD
     Route: 048
     Dates: start: 2004
  6. LISINOPRIL. [Concomitant]
     Active Substance: LISINOPRIL
     Indication: BLOOD PRESSURE INCREASED
     Dosage: 10 MG, 1X/DAY:QD
     Route: 048
  7. MISOPROSTOL. [Concomitant]
     Active Substance: MISOPROSTOL
     Indication: ARTHRITIS
     Dosage: 200 ?G, 1X/DAY:QD (NIGHTLY)
     Route: 048
     Dates: start: 2004
  8. ZANAFLEX [Concomitant]
     Active Substance: TIZANIDINE HYDROCHLORIDE
     Indication: MUSCLE SPASMS
     Dosage: 4 MG, 3X/DAY:TID
     Route: 048
     Dates: start: 201402
  9. LIALDA [Suspect]
     Active Substance: MESALAMINE
     Indication: HAEMORRHOIDS
     Dosage: 2.4 G, 1X/DAY:QD (2 X 1.2 G TABLETS)
     Route: 048
     Dates: start: 20140811, end: 20140813
  10. DICLOFENAC [Concomitant]
     Active Substance: DICLOFENAC
     Dosage: 50 MG, AS REQ^D
     Route: 048
     Dates: start: 2004
  11. OMEPRAZOLE. [Concomitant]
     Active Substance: OMEPRAZOLE
     Indication: DYSPEPSIA
     Dosage: 40 MG, 1X/DAY:QD
     Route: 048
  12. GLIPIZIDE. [Concomitant]
     Active Substance: GLIPIZIDE
     Indication: TYPE 2 DIABETES MELLITUS
     Dosage: 2.5 MG, 1X/DAY:QD
     Route: 048
     Dates: start: 2013
  13. FLONASE                            /00908302/ [Concomitant]
     Indication: SEASONAL ALLERGY
     Dosage: 2 DF, 1X/DAY:QD (2 SPRAYS)
     Route: 045

REACTIONS (11)
  - Urine output decreased [Recovering/Resolving]
  - Blister [Not Recovered/Not Resolved]
  - Dysphonia [Not Recovered/Not Resolved]
  - Blood glucose increased [Not Recovered/Not Resolved]
  - Arthritis [Not Recovered/Not Resolved]
  - Hypoaesthesia [Not Recovered/Not Resolved]
  - Insomnia [Not Recovered/Not Resolved]
  - Pruritus [Not Recovered/Not Resolved]
  - Nausea [Recovering/Resolving]
  - Dizziness [Recovering/Resolving]
  - Off label use [Recovered/Resolved]

NARRATIVE: CASE EVENT DATE: 201408
